FAERS Safety Report 9527565 (Version 1)
Quarter: 2013Q3

REPORT INFORMATION
  Report Type: Spontaneous
  Country: US (occurrence: None)
  Receive Date: 20130913
  Receipt Date: 20130913
  Transmission Date: 20140515
  Serious: Yes (Life-Threatening, Hospitalization, Other)
  Sender: FDA-Public Use
  Company Number: DAV-AE-FUR-13-06

PATIENT
  Age: 56 Year
  Sex: Male

DRUGS (5)
  1. FUROSEMIDE [Suspect]
     Indication: SUICIDE ATTEMPT
  2. INSULIN GLARGINE [Concomitant]
  3. METOPROLOL [Concomitant]
  4. DIPHENHYDRAMINE [Concomitant]
  5. LISINOPRIL [Concomitant]

REACTIONS (8)
  - Hypoglycaemia [None]
  - Intentional overdose [None]
  - Suicide attempt [None]
  - Heart rate decreased [None]
  - Hypotension [None]
  - Somnolence [None]
  - Diet refusal [None]
  - Refusal of treatment by patient [None]
